FAERS Safety Report 9866470 (Version 1)
Quarter: 2014Q1

REPORT INFORMATION
  Report Type: Spontaneous
  Country: DE (occurrence: DE)
  Receive Date: 20140204
  Receipt Date: 20140204
  Transmission Date: 20141002
  Serious: Yes (Death)
  Sender: FDA-Public Use
  Company Number: DE-JNJFOC-20140200362

PATIENT
  Age: 62 Year
  Sex: Female

DRUGS (3)
  1. DIPHENHYDRAMINE [Suspect]
     Indication: SUICIDE ATTEMPT
     Dosage: 50 PILLS
     Route: 048
  2. DIPHENHYDRAMINE [Suspect]
     Indication: SUICIDE ATTEMPT
     Dosage: 60PILLS. ASSUMED AMOUNT INGESTED, 4250 MG AND 64.4 MG/KG.
     Route: 048
  3. DOXYLAMINE [Suspect]
     Indication: SUICIDE ATTEMPT
     Dosage: EMPTY PACKAGE WITH 40 PILLS. ASSUMED AMOUNT INGESTED, 1000MG AND 15.1 MG/KG.
     Route: 048

REACTIONS (1)
  - Toxicity to various agents [Fatal]
